FAERS Safety Report 18751381 (Version 1)
Quarter: 2021Q1

REPORT INFORMATION
  Report Type: Spontaneous
  Country: GB (occurrence: GB)
  Receive Date: 20210118
  Receipt Date: 20210118
  Transmission Date: 20210419
  Serious: Yes (Other)
  Sender: FDA-Public Use
  Company Number: GB-TEVA-2021-GB-1867329

PATIENT
  Age: 23 Year
  Sex: Female
  Weight: 47 kg

DRUGS (2)
  1. ELVANSE [Concomitant]
     Active Substance: LISDEXAMFETAMINE DIMESYLATE
     Indication: ATTENTION DEFICIT HYPERACTIVITY DISORDER
  2. TEVA UK QUETIAPINE [Suspect]
     Active Substance: QUETIAPINE
     Indication: ANXIETY
     Dosage: 50 MG
     Route: 048
     Dates: start: 20190401

REACTIONS (3)
  - Sleep paralysis [Not Recovered/Not Resolved]
  - Hallucination [Unknown]
  - Sinusitis [Not Recovered/Not Resolved]
